FAERS Safety Report 5068335-X (Version None)
Quarter: 2006Q3

REPORT INFORMATION
  Report Type: 
  Country: None (occurrence: None)
  Receive Date: 20060802
  Receipt Date: 20050808
  Transmission Date: 20061208
  Serious: No
  Sender: FDA-Public Use
  Company Number: US-BRISTOL-MYERS SQUIBB COMPANY-13066337

PATIENT
  Age: 82 Year
  Sex: Female
  Weight: 66 kg

DRUGS (3)
  1. COUMADIN [Suspect]
     Indication: THROMBOSIS
     Dates: start: 20050101
  2. TOPROL-XL [Concomitant]
     Indication: HYPERTENSION
  3. DITROPAN XL [Concomitant]
     Indication: BLADDER DISORDER

REACTIONS (1)
  - HAIR DISORDER [None]
